FAERS Safety Report 7654028-9 (Version None)
Quarter: 2011Q3

REPORT INFORMATION
  Report Type: 
  Country: None (occurrence: None)
  Receive Date: 20110803
  Receipt Date: 20110722
  Transmission Date: 20111222
  Serious: Yes (Other)
  Sender: FDA-Public Use
  Company Number: PHHY2011US65851

PATIENT
  Sex: Male

DRUGS (2)
  1. EXJADE [Suspect]
     Indication: HAEMOCHROMATOSIS
     Dosage: 3625 MG, QD
     Route: 048
     Dates: start: 20100501
  2. EXJADE [Suspect]
     Dosage: 3500 MG, QD
     Route: 048

REACTIONS (1)
  - WRONG TECHNIQUE IN DRUG USAGE PROCESS [None]
